FAERS Safety Report 8981000 (Version 1)
Quarter: 2012Q4

REPORT INFORMATION
  Report Type: 
  Country: US (occurrence: US)
  Receive Date: 20121221
  Receipt Date: 20121221
  Transmission Date: 20130627
  Serious: No
  Sender: FDA-Public Use
  Company Number: US-009507513-1212USA005859

PATIENT
  Sex: Female

DRUGS (1)
  1. IMPLANON [Suspect]
     Indication: CONTRACEPTION
     Dosage: 3 years implant
     Dates: start: 20120425, end: 2012

REACTIONS (4)
  - Menstruation irregular [Unknown]
  - Medical device complication [Unknown]
  - Product quality issue [Unknown]
  - Device damage [Unknown]
